FAERS Safety Report 15422645 (Version 1)
Quarter: 2018Q3

REPORT INFORMATION
  Report Type: Spontaneous
  Country: US (occurrence: US)
  Receive Date: 20180925
  Receipt Date: 20180925
  Transmission Date: 20181010
  Serious: Yes (Death, Other)
  Sender: FDA-Public Use
  Company Number: US-AMGEN-USASP2017082658

PATIENT
  Age: 6 Month
  Sex: Male

DRUGS (4)
  1. SENSIPAR [Suspect]
     Active Substance: CINACALCET HYDROCHLORIDE
     Indication: HYPERPARATHYROIDISM SECONDARY
     Dosage: 0.88 MG/KG, QD
     Route: 065
  2. SENSIPAR [Suspect]
     Active Substance: CINACALCET HYDROCHLORIDE
     Dosage: 7.06 MG/KG, QD
     Route: 065
  3. RENVELA [Concomitant]
     Active Substance: SEVELAMER CARBONATE
     Dosage: UNK (800 TO 2400 MG MIXED IN THE DAILY FORMULA OR DIVIDED THREE TO FOUR TIMES PER DAY)
  4. RENAGEL [Concomitant]
     Active Substance: SEVELAMER HYDROCHLORIDE
     Dosage: UNK (800 TO 2400 MG MIXED IN THE DAILY FORMULA OR DIVIDED THREE TO FOUR TIMES PER DAY)

REACTIONS (3)
  - Peritonitis [Fatal]
  - Off label use [Unknown]
  - Hypercalcaemia [Unknown]
